FAERS Safety Report 6822376-8 (Version None)
Quarter: 2010Q3

REPORT INFORMATION
  Report Type: 
  Country: None (occurrence: None)
  Receive Date: 20100708
  Receipt Date: 20100625
  Transmission Date: 20110219
  Serious: Yes (Other)
  Sender: FDA-Public Use
  Company Number: PHHY2010US42464

PATIENT
  Sex: Female

DRUGS (4)
  1. EXJADE [Suspect]
     Indication: CHRONIC LYMPHOCYTIC LEUKAEMIA
     Dosage: 1000 MG, QD
     Route: 048
  2. PRANDIN [Concomitant]
  3. BACTRIM [Concomitant]
  4. FAMVIR [Concomitant]

REACTIONS (2)
  - DRUG INEFFECTIVE [None]
  - SPLENECTOMY [None]
